FAERS Safety Report 10009598 (Version 1)
Quarter: 2014Q1

REPORT INFORMATION
  Report Type: Spontaneous
  Country: GB (occurrence: GB)
  Receive Date: 20140313
  Receipt Date: 20140313
  Transmission Date: 20141002
  Serious: Yes (Death, Other)
  Sender: FDA-Public Use
  Company Number: GB-TEVA-466000ISR

PATIENT
  Age: 14 Year
  Sex: Male

DRUGS (7)
  1. FLUDARABINE [Suspect]
     Indication: ACUTE MYELOID LEUKAEMIA
     Dosage: 1 REGIMEN
     Route: 065
     Dates: start: 20051224, end: 20051228
  2. CYTARABINE [Concomitant]
     Indication: ACUTE MYELOID LEUKAEMIA
     Dates: start: 20051224
  3. CYTARABINE [Concomitant]
     Indication: ACUTE MYELOID LEUKAEMIA
     Dates: start: 20060118
  4. DAUNORUBICIN [Concomitant]
     Indication: ACUTE MYELOID LEUKAEMIA
     Dates: start: 20060118
  5. ETOPOSIDE [Concomitant]
     Indication: ACUTE MYELOID LEUKAEMIA
     Dates: start: 20060118
  6. GRANULOCYTE COLONY-STIMULATING FACTOR NOS [Concomitant]
     Indication: ACUTE MYELOID LEUKAEMIA
     Dates: start: 20051224
  7. IDARUBICIN [Concomitant]
     Indication: ACUTE MYELOID LEUKAEMIA
     Dates: start: 20051224

REACTIONS (4)
  - Death [Fatal]
  - Drug ineffective [Unknown]
  - Off label use [Unknown]
  - Off label use [Unknown]
